FAERS Safety Report 7146393-6 (Version None)
Quarter: 2010Q4

REPORT INFORMATION
  Report Type: 
  Country: None (occurrence: None)
  Receive Date: 20101208
  Receipt Date: 20100421
  Transmission Date: 20110411
  Serious: No
  Sender: FDA-Public Use
  Company Number: US-BRISTOL-MYERS SQUIBB COMPANY-15064629

PATIENT
  Age: 50 Year
  Sex: Male
  Weight: 104 kg

DRUGS (1)
  1. PRAVASTATIN SODIUM [Suspect]
     Indication: HYPERLIPIDAEMIA
     Dosage: 1 DF = 40MG IN THE MORNING + ADDITIONAL 2 TABLETS IN AFTERNOON ON 15-APR-2010.THERAPY ONGOING.
     Route: 048

REACTIONS (5)
  - BLOOD GLUCOSE INCREASED [None]
  - FATIGUE [None]
  - MALAISE [None]
  - MEDICATION ERROR [None]
  - TOOTHACHE [None]
